FAERS Safety Report 4324700-7 (Version None)
Quarter: 2004Q1

REPORT INFORMATION
  Report Type: 
  Country: None (occurrence: None)
  Receive Date: 20040323
  Receipt Date: 20040310
  Transmission Date: 20041129
  Serious: Yes (Hospitalization)
  Sender: FDA-Public Use
  Company Number: 03P-163-0240469-00

PATIENT
  Age: 61 Year
  Sex: Male
  Weight: 67.586 kg

DRUGS (3)
  1. HUMIRA [Suspect]
     Dosage: 40 MG, 1 IN 2 WK, SUBCUTANEOUS
     Route: 058
     Dates: start: 20030515, end: 20030515
  2. METHOTREXATE [Suspect]
     Dosage: 15 MG
  3. PREDNISONE [Concomitant]

REACTIONS (7)
  - ATELECTASIS [None]
  - HEADACHE [None]
  - LETHARGY [None]
  - LIVER FUNCTION TEST ABNORMAL [None]
  - LUNG NEOPLASM [None]
  - PNEUMONIA [None]
  - POST HERPETIC NEURALGIA [None]
